FAERS Safety Report 13938558 (Version 1)
Quarter: 2017Q3

REPORT INFORMATION
  Report Type: Report from Study
  Country: None (occurrence: NL)
  Receive Date: 20170905
  Receipt Date: 20170905
  Transmission Date: 20171127
  Serious: Yes (Hospitalization)
  Sender: FDA-Public Use
  Company Number: NL-ABBVIE-17K-114-2025319-00

PATIENT
  Sex: Male

DRUGS (1)
  1. DUODOPA [Suspect]
     Active Substance: CARBIDOPA\LEVODOPA
     Indication: PARKINSON^S DISEASE
     Dosage: MORNING DOSE: 14, CONTINUOUS DOSE: 3.5, EXTRA DOSE: 3.3
     Route: 050
     Dates: start: 20170523

REACTIONS (8)
  - Delirium [Unknown]
  - Device connection issue [Recovered/Resolved]
  - Intentional medical device removal by patient [Unknown]
  - Delirium [Recovered/Resolved]
  - Psychotic disorder [Unknown]
  - Urinary tract infection [Unknown]
  - Somnolence [Not Recovered/Not Resolved]
  - Dehydration [Unknown]

NARRATIVE: CASE EVENT DATE: 2017
